FAERS Safety Report 9014670 (Version 5)
Quarter: 2014Q2

REPORT INFORMATION
  Report Type: Report from Study
  Country: DE (occurrence: DE)
  Receive Date: 20130115
  Receipt Date: 20140624
  Transmission Date: 20141212
  Serious: Yes (Death, Hospitalization, Other)
  Sender: FDA-Public Use
  Company Number: DE-ROCHE-1178836

PATIENT
  Age: 74 Year
  Sex: Female
  Weight: 44 kg

DRUGS (9)
  1. BEVACIZUMAB [Suspect]
     Indication: BREAST CANCER METASTATIC
     Route: 042
     Dates: start: 20120815, end: 20120815
  2. BEVACIZUMAB [Suspect]
     Dosage: LAST DOSE PRIOR TO SAE:28/NOV/2012
     Route: 042
     Dates: start: 20121128, end: 20121128
  3. PACLITAXEL [Concomitant]
     Indication: BREAST CANCER METASTATIC
     Dosage: LAST DOSE PRIOR TO SAE: 28/NOV/2012
     Route: 042
     Dates: start: 20120815
  4. PACLITAXEL [Concomitant]
     Route: 042
     Dates: start: 20120905
  5. PACLITAXEL [Concomitant]
     Route: 042
     Dates: start: 20120926
  6. PACLITAXEL [Concomitant]
     Route: 042
     Dates: start: 20121017
  7. PACLITAXEL [Concomitant]
     Route: 042
     Dates: start: 20121107
  8. PACLITAXEL [Concomitant]
     Route: 042
     Dates: start: 20121128
  9. DENOSUMAB [Concomitant]
     Dosage: LAST DOSE PRIOR TO SAE 26/NOV/2012
     Route: 058

REACTIONS (7)
  - Sepsis [Fatal]
  - Multi-organ failure [Fatal]
  - Necrotising fasciitis [Fatal]
  - Bursitis [Fatal]
  - Haemorrhagic anaemia [Fatal]
  - Cellulitis [Fatal]
  - Cellulitis [Fatal]
